FAERS Safety Report 10167626 (Version 1)
Quarter: 2014Q2

REPORT INFORMATION
  Report Type: Spontaneous
  Country: US (occurrence: US)
  Receive Date: 20140512
  Receipt Date: 20140512
  Transmission Date: 20141212
  Serious: Yes (Other)
  Sender: FDA-Public Use
  Company Number: US-TEVA-480886USA

PATIENT
  Age: 35 Year
  Sex: Female
  Weight: 68.55 kg

DRUGS (3)
  1. PARAGARD 380A [Suspect]
     Indication: CONTRACEPTION
     Route: 015
     Dates: start: 20140502
  2. STRATTERA [Concomitant]
     Indication: ATTENTION DEFICIT/HYPERACTIVITY DISORDER
  3. LEVOXYL [Concomitant]
     Indication: HYPOTHYROIDISM

REACTIONS (5)
  - Device dislocation [Not Recovered/Not Resolved]
  - Hyperventilation [Recovered/Resolved]
  - Vomiting [Recovered/Resolved]
  - Dysmenorrhoea [Unknown]
  - Metrorrhagia [Not Recovered/Not Resolved]
